FAERS Safety Report 17688933 (Version 15)
Quarter: 2020Q3

REPORT INFORMATION
  Report Type: Report from Study
  Country: IN (occurrence: IN)
  Receive Date: 20200421
  Receipt Date: 20200714
  Transmission Date: 20201102
  Serious: Yes (Other)
  Sender: FDA-Public Use
  Company Number: NVSC2020IN005324

PATIENT
  Age: 36 Year
  Sex: Male
  Weight: 98 kg

DRUGS (4)
  1. GALVUS [Suspect]
     Active Substance: VILDAGLIPTIN
     Indication: DIABETES MELLITUS
     Dosage: 1 DF, BID (OT)
     Route: 048
     Dates: start: 20200318
  2. EVION [Concomitant]
     Active Substance: .ALPHA.-TOCOPHEROL ACETATE
     Indication: HEPATIC STEATOSIS
     Dosage: 400 MG (SINCE 2 YEARS)
     Route: 065
  3. GALVUS MET [Suspect]
     Active Substance: METFORMIN HYDROCHLORIDE\VILDAGLIPTIN
     Indication: DIABETES MELLITUS
     Dosage: 1 DF (METFORMIN 1000 MG, VILDAGLIPTIN 50 MG), BID (1?0?1) (POST MEAL)
     Route: 048
     Dates: start: 2019
  4. FORXIGA [Concomitant]
     Active Substance: DAPAGLIFLOZIN
     Indication: PRODUCT USED FOR UNKNOWN INDICATION
     Route: 065

REACTIONS (5)
  - Blood glucose fluctuation [Unknown]
  - Hyperglycaemia [Not Recovered/Not Resolved]
  - Body mass index increased [Unknown]
  - Glycosylated haemoglobin increased [Not Recovered/Not Resolved]
  - Overweight [Unknown]

NARRATIVE: CASE EVENT DATE: 20200318
